FAERS Safety Report 16006837 (Version 2)
Quarter: 2019Q1

REPORT INFORMATION
  Report Type: Report from Study
  Country: CO (occurrence: CO)
  Receive Date: 20190226
  Receipt Date: 20190301
  Transmission Date: 20190418
  Serious: Yes (Hospitalization)
  Sender: FDA-Public Use
  Company Number: CO-ASTELLAS-2019US007583

PATIENT
  Age: 41 Year
  Sex: Female

DRUGS (7)
  1. TACROLIMUS. [Suspect]
     Active Substance: TACROLIMUS
     Indication: RENAL TRANSPLANT
     Dosage: 10 MG, ONCE DAILY (2 CAPSULES OF 5 MG)
     Route: 048
     Dates: start: 20150620
  2. CALCITRIOL. [Concomitant]
     Active Substance: CALCITRIOL
     Indication: TRANSPLANT
     Dosage: 50 MG, ONCE DAILY (SINCE OF THE TRANSPLANT 2 TABLETS AT MORNING)
     Route: 058
  3. ATORVASTATIN [Concomitant]
     Active Substance: ATORVASTATIN
     Indication: BLOOD CHOLESTEROL
     Dosage: 20 MG, ONCE DAILY (SINCE TEN YEARS AGO)
     Route: 058
  4. AZATHIOPRINE. [Concomitant]
     Active Substance: AZATHIOPRINE
     Indication: TRANSPLANT
     Dosage: SINCE OF THE TRANSPLANT (2 TABLETS A DAILY)
     Route: 048
  5. PREDNISOLONE. [Concomitant]
     Active Substance: PREDNISOLONE
     Indication: TRANSPLANT
     Dosage: 15 MG, ONCE WEEKLY (SINCE OF THE TRANSPLANT THREE TABLETS IN THE WEEK)
     Route: 048
  6. ATORVASTATIN [Concomitant]
     Active Substance: ATORVASTATIN
     Indication: BLOOD TRIGLYCERIDES
  7. OMEPRAZOLE. [Concomitant]
     Active Substance: OMEPRAZOLE
     Indication: REFLUX GASTRITIS
     Dosage: 20 MG, ONCE DAILY (SINCE OF THE TRANSPLANT, 1 TABLET AT MORNING)
     Route: 065

REACTIONS (3)
  - Blood creatinine increased [Unknown]
  - Uterine leiomyoma [Unknown]
  - Haemoglobin decreased [Unknown]

NARRATIVE: CASE EVENT DATE: 20190211
